FAERS Safety Report 4708368-3 (Version None)
Quarter: 2005Q3

REPORT INFORMATION
  Report Type: 
  Country: None (occurrence: None)
  Receive Date: 20050706
  Receipt Date: 20050624
  Transmission Date: 20060218
  Serious: Yes (Life-Threatening, Other)
  Sender: FDA-Public Use
  Company Number: KII-2005-0017206

PATIENT
  Age: 30 Year
  Sex: Female

DRUGS (4)
  1. OXYCONTIN [Suspect]
     Dosage: ORAL
     Route: 048
  2. LITHIUM CARBONATE [Suspect]
     Dosage: ORAL
     Route: 048
  3. TRAZADONE  (TRAZODONE) [Suspect]
     Dosage: ORAL
     Route: 048
  4. SSRI [Suspect]
     Dosage: ORAL
     Route: 048

REACTIONS (7)
  - BLOOD PH DECREASED [None]
  - COMA [None]
  - COUGH [None]
  - GRAND MAL CONVULSION [None]
  - PCO2 DECREASED [None]
  - PO2 DECREASED [None]
  - RESPIRATORY ARREST [None]
